FAERS Safety Report 7973478-4 (Version None)
Quarter: 2011Q4

REPORT INFORMATION
  Report Type: 
  Country: None (occurrence: None)
  Receive Date: 20111201
  Receipt Date: 20111117
  Transmission Date: 20120403
  Serious: Yes (Hospitalization)
  Sender: FDA-Public Use
  Company Number: 2011SP054029

PATIENT
  Age: 27 Year
  Sex: Female

DRUGS (4)
  1. REMERON [Suspect]
     Indication: DEPRESSION
     Dosage: 15 MG;PO
     Route: 048
     Dates: start: 20111002, end: 20111002
  2. PAROXETINE HYDROCHLORIDE [Suspect]
     Indication: DEPRESSION
     Dosage: 12 DF;PO
     Route: 048
     Dates: start: 20111002, end: 20111002
  3. VALPROATE SODIUM [Suspect]
     Indication: DEPRESSION
     Dosage: 12 DF;PO
     Route: 048
     Dates: start: 20111002, end: 20111002
  4. LEVOSULPIRIDE [Concomitant]

REACTIONS (3)
  - MULTIPLE DRUG OVERDOSE INTENTIONAL [None]
  - INTENTIONAL SELF-INJURY [None]
  - BRADYPHRENIA [None]
